FAERS Safety Report 8327410-4 (Version None)
Quarter: 2012Q2

REPORT INFORMATION
  Report Type: 
  Country: None (occurrence: None)
  Receive Date: 20120419
  Receipt Date: 20120307
  Transmission Date: 20120825
  Serious: Yes (Hospitalization, Other)
  Sender: FDA-Public Use
  Company Number: 2011027679

PATIENT
  Age: 47 Year
  Sex: Female
  Weight: 61.2356 kg

DRUGS (23)
  1. HIZENTRA [Suspect]
  2. HIZENTRA [Suspect]
  3. PREDNISONE TAB [Concomitant]
  4. NEXIUM [Concomitant]
  5. HIZENTRA [Suspect]
  6. HIZENTRA [Suspect]
  7. HIZENTRA [Suspect]
  8. LORAZEPAM [Concomitant]
  9. ACETAMINOPHEN [Concomitant]
  10. MULTI-VITAMIN [Concomitant]
  11. SUDAFED 12 HOUR [Concomitant]
  12. HIZENTRA [Suspect]
     Indication: IMMUNODEFICIENCY COMMON VARIABLE
     Dosage: SEE IMAGE
     Route: 058
     Dates: start: 20101101
  13. HIZENTRA [Suspect]
     Indication: IMMUNODEFICIENCY COMMON VARIABLE
     Dosage: SEE IMAGE
     Route: 058
     Dates: start: 20120215, end: 20120215
  14. HIZENTRA [Suspect]
     Indication: IMMUNODEFICIENCY COMMON VARIABLE
     Dosage: SEE IMAGE
     Route: 058
     Dates: start: 20120301
  15. HIZENTRA [Suspect]
  16. HIZENTRA [Suspect]
  17. FENTANYL [Concomitant]
  18. OXYGEN (OXYGEN) [Concomitant]
  19. LORAZEPAM [Concomitant]
  20. HIZENTRA [Suspect]
  21. HIZENTRA [Suspect]
  22. ACYCLOVIR [Concomitant]
  23. ASPIRIN [Concomitant]

REACTIONS (7)
  - RESPIRATORY TRACT INFECTION [None]
  - LIVER FUNCTION TEST ABNORMAL [None]
  - SINUSITIS [None]
  - SPINAL DISORDER [None]
  - HEPATIC STEATOSIS [None]
  - CONDITION AGGRAVATED [None]
  - BONE NEOPLASM MALIGNANT [None]
